FAERS Safety Report 8866164 (Version 1)
Quarter: 2012Q4

REPORT INFORMATION
  Report Type: 
  Country: ES (occurrence: ES)
  Receive Date: 20121025
  Receipt Date: 20121025
  Transmission Date: 20130627
  Serious: Yes (Life-Threatening, Hospitalization)
  Sender: FDA-Public Use
  Company Number: ES-BRISTOL-MYERS SQUIBB COMPANY-17048042

PATIENT
  Age: 84 Year
  Sex: Male

DRUGS (5)
  1. HYDREA [Suspect]
     Indication: ESSENTIAL THROMBOCYTHAEMIA
     Dosage: strength:500mg
2005-2008,1.5gram
Jan2009-5may2009
     Route: 048
     Dates: start: 2005
  2. MESALAZINE [Concomitant]
     Indication: COLITIS ULCERATIVE
     Route: 048
     Dates: start: 19990728
  3. SEGURIL [Concomitant]
     Route: 048
  4. TEBETANE COMPUESTO [Concomitant]
     Indication: BENIGN PROSTATIC HYPERPLASIA
     Route: 048
     Dates: start: 2003
  5. TRANGOREX [Concomitant]
     Indication: ATRIAL FIBRILLATION
     Route: 048
     Dates: start: 2001, end: 20090505

REACTIONS (1)
  - Pancytopenia [Recovered/Resolved]
